FAERS Safety Report 8289526-0 (Version None)
Quarter: 2012Q2

REPORT INFORMATION
  Report Type: 
  Country: None (occurrence: None)
  Receive Date: 20120417
  Receipt Date: 20120411
  Transmission Date: 20120825
  Serious: Yes (Other)
  Sender: FDA-Public Use
  Company Number: JP-PFIZER INC-2012090576

PATIENT

DRUGS (1)
  1. LYRICA [Suspect]
     Dosage: 150 MG DAILY
     Route: 048

REACTIONS (3)
  - OEDEMA PERIPHERAL [None]
  - CARDIAC FAILURE [None]
  - PULMONARY OEDEMA [None]
